FAERS Safety Report 7398907-9 (Version None)
Quarter: 2011Q2

REPORT INFORMATION
  Report Type: 
  Country: None (occurrence: None)
  Receive Date: 20110407
  Receipt Date: 20110330
  Transmission Date: 20111010
  Serious: Yes (Other)
  Sender: FDA-Public Use
  Company Number: US-ABBOTT-11P-163-0715613-00

PATIENT
  Sex: Female
  Weight: 86.26 kg

DRUGS (1)
  1. HUMIRA [Suspect]
     Indication: CROHN'S DISEASE
     Route: 058
     Dates: start: 20100701, end: 20100801

REACTIONS (7)
  - INFLAMMATION [None]
  - ABSCESS [None]
  - POLYP [None]
  - ULCER [None]
  - LARGE INTESTINE PERFORATION [None]
  - ABDOMINAL PAIN [None]
  - BENIGN COLONIC NEOPLASM [None]
